FAERS Safety Report 9297940 (Version 2)
Quarter: 2013Q2

REPORT INFORMATION
  Report Type: Spontaneous
  Country: GR (occurrence: GR)
  Receive Date: 20130520
  Receipt Date: 20130619
  Transmission Date: 20140414
  Serious: Yes (Other)
  Sender: FDA-Public Use
  Company Number: GR-PFIZER INC-2013147821

PATIENT
  Age: 38 Year
  Sex: Male

DRUGS (1)
  1. DALACIN C [Suspect]
     Indication: TOOTH ABSCESS
     Dosage: 300 MG, 2X/DAY
     Dates: start: 2013, end: 201304

REACTIONS (4)
  - Pain [Unknown]
  - Rash [Unknown]
  - Skin exfoliation [Unknown]
  - Haematocrit decreased [Unknown]
